FAERS Safety Report 9640961 (Version 1)
Quarter: 2013Q4

REPORT INFORMATION
  Report Type: Report from Study
  Country: US (occurrence: US)
  Receive Date: 20131023
  Receipt Date: 20131023
  Transmission Date: 20140711
  Serious: No
  Sender: FDA-Public Use
  Company Number: US-ABBVIE-12P-163-1011552-00

PATIENT
  Age: 37 Year
  Sex: Female
  Weight: 85.35 kg

DRUGS (4)
  1. LUPRON DEPOT [Suspect]
     Dates: start: 20120916
  2. ATENOLOL [Concomitant]
     Indication: BLOOD PRESSURE
  3. PROZAC [Concomitant]
     Indication: DEPRESSION
  4. NORETHINDRONE ACETATE [Concomitant]
     Indication: PRODUCT USED FOR UNKNOWN INDICATION
     Dates: start: 201211

REACTIONS (5)
  - Pain [Not Recovered/Not Resolved]
  - Hot flush [Not Recovered/Not Resolved]
  - Depression [Not Recovered/Not Resolved]
  - Anxiety [Not Recovered/Not Resolved]
  - Menstruation irregular [Unknown]
